FAERS Safety Report 7581584-1 (Version None)
Quarter: 2011Q2

REPORT INFORMATION
  Report Type: 
  Country: None (occurrence: None)
  Receive Date: 20110629
  Receipt Date: 20110617
  Transmission Date: 20111010
  Serious: Yes (Other)
  Sender: FDA-Public Use
  Company Number: US-ELI_LILLY_AND_COMPANY-US201106005993

PATIENT
  Sex: Female

DRUGS (2)
  1. LANTUS [Concomitant]
     Dosage: UNK, EACH EVENING
  2. HUMALOG [Suspect]
     Indication: DIABETES MELLITUS
     Dosage: UNK UNK, PRN

REACTIONS (2)
  - VISUAL ACUITY REDUCED [None]
  - BLINDNESS [None]
